FAERS Safety Report 25212075 (Version 4)
Quarter: 2025Q3

REPORT INFORMATION
  Report Type: Spontaneous
  Country: JP (occurrence: JP)
  Receive Date: 20250418
  Receipt Date: 20250908
  Transmission Date: 20251021
  Serious: Yes (Hospitalization)
  Sender: ROCHE
  Company Number: JP-CHUGAI-2025011941

PATIENT
  Age: 8 Decade
  Sex: Female
  Weight: 47.1 kg

DRUGS (20)
  1. ACTEMRA [Suspect]
     Active Substance: TOCILIZUMAB
     Indication: Still^s disease
     Dosage: ONCE/WEEK
     Route: 042
     Dates: end: 20250404
  2. ACTEMRA [Suspect]
     Active Substance: TOCILIZUMAB
     Dosage: ONCE/WEEK
     Route: 042
     Dates: end: 20241226
  3. ACTEMRA [Suspect]
     Active Substance: TOCILIZUMAB
     Dosage: ONCE/WEEK
     Route: 042
     Dates: end: 20250219
  4. ACTEMRA [Suspect]
     Active Substance: TOCILIZUMAB
     Dosage: ONCE/WEEK
     Route: 042
     Dates: end: 20250408
  5. PREDNISOLONE [Suspect]
     Active Substance: PREDNISOLONE
     Indication: Product used for unknown indication
     Route: 048
     Dates: start: 20241025, end: 20241106
  6. PREDNISOLONE [Suspect]
     Active Substance: PREDNISOLONE
     Route: 048
     Dates: start: 20241107
  7. PREDNISOLONE [Suspect]
     Active Substance: PREDNISOLONE
     Route: 048
     Dates: start: 20241121, end: 20241127
  8. PREDNISOLONE [Suspect]
     Active Substance: PREDNISOLONE
     Route: 048
     Dates: start: 20241128
  9. PREDNISOLONE [Suspect]
     Active Substance: PREDNISOLONE
     Route: 048
     Dates: end: 20241008
  10. PREDNISOLONE [Suspect]
     Active Substance: PREDNISOLONE
     Route: 048
     Dates: start: 20241012, end: 20241023
  11. TACROLIMUS [Suspect]
     Active Substance: TACROLIMUS
     Indication: Product used for unknown indication
     Route: 048
  12. NEORAL [Suspect]
     Active Substance: CYCLOSPORINE
     Indication: Product used for unknown indication
     Route: 048
     Dates: end: 20250128
  13. NEORAL [Suspect]
     Active Substance: CYCLOSPORINE
     Route: 048
  14. LANSOPRAZOLE [Suspect]
     Active Substance: LANSOPRAZOLE
     Indication: Product used for unknown indication
     Route: 048
  15. SULFAMETHOXAZOLE\TRIMETHOPRIM [Suspect]
     Active Substance: SULFAMETHOXAZOLE\TRIMETHOPRIM
     Indication: Product used for unknown indication
     Route: 048
  16. BILASTINE [Concomitant]
     Active Substance: BILASTINE
  17. ATOVAQUONE [Concomitant]
     Active Substance: ATOVAQUONE
  18. ALENDRONATE [Concomitant]
     Active Substance: ALENDRONATE SODIUM
  19. ALFACALCIDOL [Concomitant]
     Active Substance: ALFACALCIDOL
  20. FUROSEMIDE [Concomitant]
     Active Substance: FUROSEMIDE

REACTIONS (13)
  - Pulmonary embolism [Recovering/Resolving]
  - Deep vein thrombosis [Recovering/Resolving]
  - Renal impairment [Recovered/Resolved]
  - Cytomegalovirus infection reactivation [Recovering/Resolving]
  - Thrombocytopenia [Recovering/Resolving]
  - Goitre [Unknown]
  - Oral candidiasis [Recovering/Resolving]
  - Still^s disease [Recovering/Resolving]
  - Constipation [Recovering/Resolving]
  - Steroid diabetes [Recovering/Resolving]
  - Interstitial lung disease [Recovering/Resolving]
  - Cardiac failure congestive [Recovering/Resolving]
  - Hyperkalaemia [Recovered/Resolved]

NARRATIVE: CASE EVENT DATE: 20241217
